FAERS Safety Report 5715467-6 (Version None)
Quarter: 2008Q2

REPORT INFORMATION
  Report Type: 
  Country: None (occurrence: None)
  Receive Date: 20080422
  Receipt Date: 20080408
  Transmission Date: 20081010
  Serious: Yes (Hospitalization)
  Sender: FDA-Public Use
  Company Number: 232777J08USA

PATIENT
  Age: 51 Year
  Sex: Female
  Weight: 84.369 kg

DRUGS (19)
  1. REBIF [Suspect]
     Indication: MULTIPLE SCLEROSIS
     Dosage: 44 MCG, 3 IN 1 WEEKS, SUBCUTANEOUS
     Route: 058
     Dates: start: 20080121
  2. SUPER B-COMPLEX WITH C (BEMINAL WITH C) [Concomitant]
  3. PERCOCET [Concomitant]
  4. CALCIUM PLUS VITAMIN D (CALDECIUM) [Concomitant]
  5. CENTRUM SILVER VITAMINS (CENTRUM SILVER) [Concomitant]
  6. OMEGA-3/OMEGA 6 FATTY ACIDS (OMEGA-6 FATTY ACIDS) [Concomitant]
  7. DIAZEPAM [Concomitant]
  8. LIDODERM [Concomitant]
  9. LISINOPRIL [Concomitant]
  10. METOPROLOL SUCCINATE [Concomitant]
  11. CHLORZOXAZONE [Concomitant]
  12. CYANOCOBALAMIN [Concomitant]
  13. CYMBALTA [Concomitant]
  14. PROVIGIL [Concomitant]
  15. VYTORIN [Concomitant]
  16. PRILOSEC [Concomitant]
  17. BUPROPION HCL [Concomitant]
  18. BACLOFEN [Concomitant]
  19. HYDROCHLOROTHIAZIDE [Concomitant]

REACTIONS (3)
  - ASTHMA [None]
  - BRONCHITIS [None]
  - PNEUMONIA [None]
